FAERS Safety Report 6023605-3 (Version None)
Quarter: 2008Q4

REPORT INFORMATION
  Report Type: 
  Country: None (occurrence: None)
  Receive Date: 20081222
  Receipt Date: 20081003
  Transmission Date: 20090506
  Serious: No
  Sender: FDA-Public Use
  Company Number: SPV1-2008-02138

PATIENT
  Age: 10 Year
  Sex: Male
  Weight: 32.7 kg

DRUGS (3)
  1. VYVANSE [Suspect]
     Indication: ATTENTION DEFICIT/HYPERACTIVITY DISORDER
     Dosage: 1X/DAY:QD, ORAL : 1X/DAY:QD, ORAL
     Route: 048
     Dates: start: 20071001, end: 20080501
  2. VYVANSE [Suspect]
     Indication: ATTENTION DEFICIT/HYPERACTIVITY DISORDER
     Dosage: 1X/DAY:QD, ORAL : 1X/DAY:QD, ORAL
     Route: 048
     Dates: start: 20080818, end: 20080827
  3. VITAMINS NOS(VITAMINS NOS) [Suspect]
     Indication: MEDICAL DIET

REACTIONS (5)
  - ABDOMINAL PAIN UPPER [None]
  - ABNORMAL BEHAVIOUR [None]
  - EYE DISORDER [None]
  - NAUSEA [None]
  - WEIGHT DECREASED [None]
